FAERS Safety Report 13206313 (Version 2)
Quarter: 2018Q2

REPORT INFORMATION
  Report Type: Report from Study
  Country: US (occurrence: US)
  Receive Date: 20170209
  Receipt Date: 20180613
  Transmission Date: 20180711
  Serious: No
  Sender: FDA-Public Use
  Company Number: US-SA-2016SA196686

PATIENT
  Age: 82 Year
  Sex: Female
  Weight: 91 kg

DRUGS (5)
  1. ALIROCUMAB [Suspect]
     Active Substance: ALIROCUMAB
     Indication: BLOOD CHOLESTEROL INCREASED
     Dosage: 75 MG,QOW
     Route: 058
     Dates: start: 201509
  2. ALIROCUMAB [Suspect]
     Active Substance: ALIROCUMAB
     Indication: LOW DENSITY LIPOPROTEIN INCREASED
     Dosage: 75 MG,QOW
     Route: 058
     Dates: start: 20160615, end: 201712
  3. ALIROCUMAB [Suspect]
     Active Substance: ALIROCUMAB
     Indication: ARTERIOSCLEROSIS
     Dosage: UNK UNK,QOW
     Route: 058
     Dates: start: 20180131
  4. METOPROLOL SUCCINATE. [Concomitant]
     Active Substance: METOPROLOL SUCCINATE
     Indication: STENT PLACEMENT
     Dosage: 1.25 MG,QD
     Dates: start: 20050715
  5. PLAVIX [Concomitant]
     Active Substance: CLOPIDOGREL BISULFATE
     Indication: ANGIOPATHY
     Dosage: 75 MG,QD
     Dates: start: 200701

REACTIONS (3)
  - Rash [Recovering/Resolving]
  - Erythema [Recovering/Resolving]
  - Erythema [Unknown]

NARRATIVE: CASE EVENT DATE: 20160601
